FAERS Safety Report 8597907-0 (Version None)
Quarter: 2012Q3

REPORT INFORMATION
  Report Type: 
  Country: None (occurrence: None)
  Receive Date: 20120816
  Receipt Date: 20120803
  Transmission Date: 20120928
  Serious: Yes (Death)
  Sender: FDA-Public Use
  Company Number: PT-ASTELLAS-2012US006669

PATIENT
  Sex: Male

DRUGS (2)
  1. CARBAPENEMS [Concomitant]
     Indication: ANTIBIOTIC THERAPY
     Dosage: UNK
     Route: 065
  2. AMBISOME [Suspect]
     Indication: PRODUCT USED FOR UNKNOWN INDICATION
     Dosage: UNK
     Route: 065
     Dates: start: 20090113

REACTIONS (2)
  - DRUG INEFFECTIVE [None]
  - FUNGAL SEPSIS [None]
